FAERS Safety Report 25853535 (Version 1)
Quarter: 2025Q3

REPORT INFORMATION
  Report Type: Spontaneous
  Country: US (occurrence: US)
  Receive Date: 20250926
  Receipt Date: 20250926
  Transmission Date: 20251020
  Serious: Yes (Other)
  Sender: AMGEN
  Company Number: US-AMGEN-USASP2025187759

PATIENT
  Age: 69 Year
  Sex: Female

DRUGS (9)
  1. PREDNISONE [Suspect]
     Active Substance: PREDNISONE
     Indication: Granulomatosis with polyangiitis
     Route: 048
     Dates: start: 201403
  2. PREDNISONE [Suspect]
     Active Substance: PREDNISONE
     Route: 048
     Dates: start: 202208
  3. PREDNISONE [Suspect]
     Active Substance: PREDNISONE
     Route: 048
     Dates: end: 2024
  4. RITUXIMAB [Suspect]
     Active Substance: RITUXIMAB
     Indication: Granulomatosis with polyangiitis
     Route: 065
     Dates: start: 201406, end: 2014
  5. METHOTREXATE [Concomitant]
     Active Substance: METHOTREXATE
     Indication: Granulomatosis with polyangiitis
     Dates: start: 201403, end: 201403
  6. METHOTREXATE [Concomitant]
     Active Substance: METHOTREXATE
     Dates: end: 202208
  7. AZATHIOPRINE [Concomitant]
     Active Substance: AZATHIOPRINE
     Indication: Granulomatosis with polyangiitis
     Dates: start: 201408, end: 201408
  8. LEFLUNOMIDE [Concomitant]
     Active Substance: LEFLUNOMIDE
     Indication: Granulomatosis with polyangiitis
  9. ABATACEPT [Concomitant]
     Active Substance: ABATACEPT
     Indication: Granulomatosis with polyangiitis
     Route: 048
     Dates: start: 202109, end: 202208

REACTIONS (12)
  - Cushing^s syndrome [Unknown]
  - Granulomatosis with polyangiitis [Recovering/Resolving]
  - Osteopenia [Unknown]
  - Influenza like illness [Unknown]
  - Alopecia areata [Recovering/Resolving]
  - Off label use [Recovering/Resolving]
  - Ear pain [Unknown]
  - Headache [Unknown]
  - Insomnia [Unknown]
  - Feeling jittery [Unknown]
  - Flushing [Unknown]
  - Nausea [Unknown]

NARRATIVE: CASE EVENT DATE: 20140101
